FAERS Safety Report 5243957-1 (Version None)
Quarter: 2007Q1

REPORT INFORMATION
  Report Type: 
  Country: None (occurrence: None)
  Receive Date: 20070220
  Receipt Date: 20070220
  Transmission Date: 20070707
  Serious: Yes (Hospitalization)
  Sender: FDA-Public Use
  Company Number: None

PATIENT
  Age: 58 Year
  Sex: Male
  Weight: 129.9 kg

DRUGS (2)
  1. INSULIN, ASPART PEN 3ML  100UNIT/ML [Suspect]
     Indication: DIABETES MELLITUS
     Dosage: INJECT 10 UNITS  TWICE A DAY SQ
     Route: 058
  2. NOVOLIN N [Suspect]
     Indication: DIABETES MELLITUS
     Dosage: INJECT 30 UNITS TWICE A DAY SQ
     Route: 058

REACTIONS (4)
  - HYPERGLYCAEMIA [None]
  - MEMORY IMPAIRMENT [None]
  - THIRST [None]
  - TREATMENT NONCOMPLIANCE [None]
